FAERS Safety Report 8850147 (Version 1)
Quarter: 2012Q4

REPORT INFORMATION
  Report Type: 
  Country: US (occurrence: US)
  Receive Date: 20121019
  Receipt Date: 20121019
  Transmission Date: 20130627
  Serious: Yes (Hospitalization)
  Sender: FDA-Public Use
  Company Number: US-GLAXOSMITHKLINE-A0997317A

PATIENT
  Age: 85 Year
  Sex: Female

DRUGS (15)
  1. ADVAIR [Suspect]
     Indication: CHRONIC OBSTRUCTIVE PULMONARY DISEASE
     Dosage: 1PUFF Twice per day
     Route: 055
     Dates: start: 2006
  2. SPIRIVA [Concomitant]
  3. SINGULAIR [Concomitant]
  4. ALBUTEROL SULFATE [Concomitant]
  5. HYDRALAZINE [Concomitant]
  6. SIMVASTATIN [Concomitant]
  7. LEXAPRO [Concomitant]
  8. MAGNESIUM SUPPLEMENT [Concomitant]
  9. KLONOPIN [Concomitant]
  10. SODIUM CHLORIDE [Concomitant]
  11. DEPAKOTE [Concomitant]
  12. BONIVA [Concomitant]
  13. VICODIN [Concomitant]
  14. ASPIRIN [Concomitant]
  15. IRON SUPPLEMENT [Concomitant]

REACTIONS (7)
  - Pneumonia [Not Recovered/Not Resolved]
  - Pleural effusion [Not Recovered/Not Resolved]
  - Pyrexia [Not Recovered/Not Resolved]
  - Dyspnoea [Not Recovered/Not Resolved]
  - Chest pain [Not Recovered/Not Resolved]
  - Drug ineffective [Not Recovered/Not Resolved]
  - Chronic obstructive pulmonary disease [Not Recovered/Not Resolved]
